FAERS Safety Report 9934575 (Version 2)
Quarter: 2014Q1

REPORT INFORMATION
  Report Type: Spontaneous
  Country: PL (occurrence: PL)
  Receive Date: 20140228
  Receipt Date: 20140228
  Transmission Date: 20141002
  Serious: Yes (Other)
  Sender: FDA-Public Use
  Company Number: PL-ASTELLAS-2014EU001465

PATIENT
  Age: 19 Year
  Sex: Male
  Weight: 25.5 kg

DRUGS (3)
  1. PROGRAF [Suspect]
     Indication: RENAL TRANSPLANT
     Dosage: 3.5 MG, BID
     Route: 048
     Dates: start: 20140201, end: 20140208
  2. CELLCEPT                           /01275102/ [Concomitant]
     Indication: RENAL TRANSPLANT
     Dosage: 500 MG, BID
     Route: 048
     Dates: start: 20140201, end: 20140209
  3. SOLUMEDROL [Concomitant]
     Indication: RENAL TRANSPLANT
     Dosage: 15 MG, QID
     Route: 042
     Dates: start: 20140201, end: 20140209

REACTIONS (4)
  - Posterior reversible encephalopathy syndrome [Recovered/Resolved]
  - Convulsion [Recovered/Resolved]
  - Computerised tomogram head abnormal [Recovered/Resolved]
  - Visual impairment [Recovered/Resolved]
